FAERS Safety Report 23594925 (Version 1)
Quarter: 2024Q1

REPORT INFORMATION
  Report Type: Report from Study
  Country: US (occurrence: None)
  Receive Date: 20240305
  Receipt Date: 20240305
  Transmission Date: 20240410
  Serious: Yes (Hospitalization)
  Sender: FDA-Public Use
  Company Number: 2024A049158

PATIENT
  Sex: Female
  Weight: 67.1 kg

DRUGS (1)
  1. LYNPARZA [Suspect]
     Active Substance: OLAPARIB
     Indication: Lung neoplasm malignant
     Route: 048
     Dates: start: 20231229

REACTIONS (2)
  - Full blood count abnormal [Recovering/Resolving]
  - Haemoglobin abnormal [Recovering/Resolving]
